FAERS Safety Report 6863427-4 (Version None)
Quarter: 2010Q3

REPORT INFORMATION
  Report Type: 
  Country: None (occurrence: None)
  Receive Date: 20100721
  Receipt Date: 20100713
  Transmission Date: 20110219
  Serious: Yes (Other)
  Sender: FDA-Public Use
  Company Number: JP-PFIZER INC-2010087100

PATIENT
  Sex: Male

DRUGS (7)
  1. LIPITOR [Suspect]
     Dosage: UNK
     Route: 048
  2. BASEN [Concomitant]
  3. ADALAT [Concomitant]
  4. NU LOTAN [Concomitant]
  5. ZYLORIC [Concomitant]
  6. PLETAL [Concomitant]
  7. GOSHAJINKIGAN [Concomitant]

REACTIONS (1)
  - EXTRASYSTOLES [None]
